FAERS Safety Report 24441656 (Version 1)
Quarter: 2024Q4

REPORT INFORMATION
  Report Type: Spontaneous
  Country: US (occurrence: US)
  Receive Date: 20241016
  Receipt Date: 20241016
  Transmission Date: 20250114
  Serious: No
  Sender: BAXTER
  Company Number: US-BAXTER-2024BAX025857

PATIENT
  Sex: Male

DRUGS (5)
  1. IFOSFAMIDE [Suspect]
     Active Substance: IFOSFAMIDE
     Dosage: UNK (1 CYCLE SINCE 2024)
     Route: 065
  2. CYCLOPHOSPHAMIDE [Suspect]
     Active Substance: CYCLOPHOSPHAMIDE
     Dosage: UNK (7 CYCLES SINCE 2024), AS A PART OF VAC THERAPY
     Route: 065
  3. VINCRISTINE SULFATE [Suspect]
     Active Substance: VINCRISTINE SULFATE
     Dosage: UNK (7 CYCLES SINCE 2024), AS A PART OF VAC THERAPY
     Route: 065
  4. DACTINOMYCIN [Suspect]
     Active Substance: DACTINOMYCIN
     Dosage: UNK (7 CYCLES SINCE 2024), AS A PART OF VAC THERAPY
     Route: 065
  5. ETOPOSIDE [Suspect]
     Active Substance: ETOPOSIDE
     Dosage: UNK (1 CYCLE SINCE 2024)
     Route: 065

REACTIONS (1)
  - Treatment failure [Unknown]
